FAERS Safety Report 20151430 (Version 1)
Quarter: 2021Q4

REPORT INFORMATION
  Report Type: Other
  Country: None (occurrence: US)
  Receive Date: 20211206
  Receipt Date: 20211206
  Transmission Date: 20220303
  Serious: Yes (Hospitalization, Other)
  Sender: FDA-Public Use
  Company Number: US-Nuvo Pharmaceuticals Inc-2122698

PATIENT
  Age: 59 Year
  Sex: Male

DRUGS (1)
  1. NAPROXEN [Suspect]
     Active Substance: NAPROXEN
     Indication: Product used for unknown indication
     Route: 065

REACTIONS (2)
  - Pyelonephritis acute [Not Recovered/Not Resolved]
  - Renal papillary necrosis [Not Recovered/Not Resolved]
